FAERS Safety Report 6299604-3 (Version None)
Quarter: 2009Q3

REPORT INFORMATION
  Report Type: 
  Country: None (occurrence: None)
  Receive Date: 20090806
  Receipt Date: 20090728
  Transmission Date: 20100115
  Serious: Yes (Hospitalization)
  Sender: FDA-Public Use
  Company Number: KR-ELI_LILLY_AND_COMPANY-KR200907006311

PATIENT
  Age: 44 Year
  Sex: Male

DRUGS (5)
  1. HUMALOG MIX 75/25 [Suspect]
     Indication: TYPE 2 DIABETES MELLITUS
     Dosage: UNK UNK,
     Route: 058
     Dates: end: 20090709
  2. HUMALOG MIX 75/25 [Suspect]
     Dosage: 45 IU, EACH MORNING
     Route: 058
     Dates: start: 20090710, end: 20090713
  3. HUMALOG MIX 75/25 [Suspect]
     Dosage: 25 IU, EACH EVENING
     Route: 058
     Dates: start: 20090710, end: 20090713
  4. HUMALOG MIX 75/25 [Suspect]
     Route: 058
     Dates: start: 20090714
  5. IMMUNOSUPPRESSANTS [Concomitant]
     Dosage: UNK, 2/D

REACTIONS (1)
  - ENTERITIS [None]
